FAERS Safety Report 15534264 (Version 2)
Quarter: 2019Q1

REPORT INFORMATION
  Report Type: Report from Study
  Country: JP (occurrence: JP)
  Receive Date: 20181021
  Receipt Date: 20190210
  Transmission Date: 20190417
  Serious: Yes (Death, Hospitalization)
  Sender: FDA-Public Use
  Company Number: JP-B.I. PHARMACEUTICALS,INC./RIDGEFIELD-2018-NB-005463

PATIENT
  Age: 83 Year
  Sex: Male
  Weight: 68 kg

DRUGS (3)
  1. BIBF 1120 [Suspect]
     Active Substance: NINTEDANIB
     Indication: IDIOPATHIC PULMONARY FIBROSIS
     Route: 065
     Dates: start: 20170530, end: 20171013
  2. ASPIRIN. [Concomitant]
     Active Substance: ASPIRIN
     Indication: PRODUCT USED FOR UNKNOWN INDICATION
     Route: 065
     Dates: end: 20171018
  3. EFIENT [Concomitant]
     Active Substance: PRASUGREL HYDROCHLORIDE
     Indication: PRODUCT USED FOR UNKNOWN INDICATION
     Route: 065
     Dates: end: 20171018

REACTIONS (2)
  - Hepatic function abnormal [Fatal]
  - Metastases to liver [Fatal]

NARRATIVE: CASE EVENT DATE: 20171013
